FAERS Safety Report 4570725-6 (Version None)
Quarter: 2005Q1

REPORT INFORMATION
  Report Type: 
  Country: None (occurrence: None)
  Receive Date: 20050202
  Receipt Date: 20050127
  Transmission Date: 20050727
  Serious: Yes (Other)
  Sender: FDA-Public Use
  Company Number: GBWYE377327JAN05

PATIENT
  Sex: Female

DRUGS (1)
  1. EFFEXOR XR [Suspect]
     Dosage: ONE CAPSULE
     Dates: start: 20050101

REACTIONS (4)
  - ABASIA [None]
  - AMNESIA [None]
  - APHASIA [None]
  - BLINDNESS [None]
